FAERS Safety Report 16601665 (Version 2)
Quarter: 2019Q3

REPORT INFORMATION
  Report Type: Spontaneous
  Country: JP (occurrence: JP)
  Receive Date: 20190719
  Receipt Date: 20190807
  Transmission Date: 20191004
  Serious: Yes (Other)
  Sender: FDA-Public Use
  Company Number: JP-SHIRE-JP201919729AA

PATIENT

DRUGS (4)
  1. ADYNOVATE [Suspect]
     Active Substance: ANTIHEMOPHILIC FACTOR, HUMAN RECOMBINANT
     Indication: PROPHYLAXIS
     Dosage: 500 INTERNATIONAL UNIT, ONE DOSE
     Route: 042
     Dates: start: 20190424, end: 20190424
  2. ADYNOVATE [Suspect]
     Active Substance: ANTIHEMOPHILIC FACTOR, HUMAN RECOMBINANT
     Indication: FACTOR VIII DEFICIENCY
     Dosage: 750 INTERNATIONAL UNIT, 2X A WEEK
     Route: 042
     Dates: start: 20190610, end: 20190620
  3. ADYNOVATE [Suspect]
     Active Substance: ANTIHEMOPHILIC FACTOR, HUMAN RECOMBINANT
     Dosage: 500 INTERNATIONAL UNIT, 2X A WEEK
     Route: 042
     Dates: start: 20190521, end: 20190606
  4. ADYNOVATE [Suspect]
     Active Substance: ANTIHEMOPHILIC FACTOR, HUMAN RECOMBINANT
     Dosage: 500 INTERNATIONAL UNIT, 1X/WEEK
     Route: 042
     Dates: start: 20190501, end: 20190514

REACTIONS (4)
  - Factor VIII inhibition [Recovering/Resolving]
  - Upper respiratory tract inflammation [Recovered/Resolved]
  - Haemorrhage subcutaneous [Recovering/Resolving]
  - Rhinitis allergic [Recovered/Resolved]

NARRATIVE: CASE EVENT DATE: 20190527
